FAERS Safety Report 5137019-1 (Version None)
Quarter: 2006Q4

REPORT INFORMATION
  Report Type: 
  Country: None (occurrence: None)
  Receive Date: 20061030
  Receipt Date: 20061025
  Transmission Date: 20070319
  Serious: Yes (Life-Threatening)
  Sender: FDA-Public Use
  Company Number: PHNU2006PL03548

PATIENT
  Age: 79 Year
  Sex: Male

DRUGS (10)
  1. DIOVAN [Suspect]
     Indication: HYPERTENSION
     Dosage: 80 MG/D
     Route: 048
     Dates: start: 20060602, end: 20061002
  2. BISOCARD [Concomitant]
  3. LOVASTIN [Concomitant]
  4. FLIXOTIDE [Concomitant]
  5. BERODUAL [Concomitant]
  6. CALCIUM GLUCONATE [Concomitant]
  7. MAGNESIUM [Concomitant]
  8. AMLOZEK [Concomitant]
  9. VINPOCETINE [Concomitant]
  10. OMEPRAZOLE [Concomitant]

REACTIONS (3)
  - DIARRHOEA [None]
  - SKIN ULCER [None]
  - VENTRICULAR ARRHYTHMIA [None]
